FAERS Safety Report 8007946-6 (Version None)
Quarter: 2011Q4

REPORT INFORMATION
  Report Type: 
  Country: None (occurrence: None)
  Receive Date: 20111227
  Receipt Date: 20111213
  Transmission Date: 20120403
  Serious: Yes (Other)
  Sender: FDA-Public Use
  Company Number: US-ELI_LILLY_AND_COMPANY-US201111003565

PATIENT
  Sex: Female

DRUGS (24)
  1. LORTAB [Concomitant]
     Dosage: UNK, EVERY 4 HRS
  2. FORTEO [Suspect]
     Indication: OSTEOPOROSIS
     Dosage: 20 UG, QD
     Dates: start: 20110928
  3. IRON [Concomitant]
  4. FORTEO [Suspect]
     Dosage: 20 UG, QD
  5. PROMETHAZINE [Concomitant]
     Dosage: UNK, EVERY 6 HRS
  6. PAXIL [Concomitant]
     Dosage: UNK, QD
  7. PROAIR HFA [Concomitant]
     Dosage: UNK, PRN
  8. ATROVENT [Concomitant]
  9. LIDOCAINE [Concomitant]
     Dosage: UNK, BID
  10. CEPHRADINE [Concomitant]
     Dosage: UNK, EVERY 6 HRS
  11. VITAMIN B-12 [Concomitant]
     Dosage: UNK, 2/M
  12. ZANTAC [Concomitant]
     Dosage: UNK, BID
  13. VALIUM [Concomitant]
     Dosage: UNK, EVERY 6 HRS
  14. FORTEO [Suspect]
     Dosage: 20 UG, QD
  15. THEOPHYLLINE [Concomitant]
  16. ISOSORB                            /00586302/ [Concomitant]
     Indication: CARDIAC DISORDER
  17. ASPIRIN [Concomitant]
     Dosage: UNK, QD
  18. XYLOCAINE [Concomitant]
     Dosage: UNK, EVERY 6 HRS
  19. FLOVENT [Concomitant]
     Dosage: UNK, BID
  20. FIBER [Concomitant]
     Dosage: UNK, QD
  21. METOPROLOL SUCCINATE [Concomitant]
     Indication: CARDIAC DISORDER
     Dosage: UNK, BID
  22. OXYGEN [Concomitant]
     Dosage: UNK
     Dates: start: 20080101
  23. VITAMIN D [Concomitant]
  24. VITAMIN C [Concomitant]

REACTIONS (15)
  - UNDERWEIGHT [None]
  - FALL [None]
  - TRAUMATIC HAEMATOMA [None]
  - CONTUSION [None]
  - LUNG DISORDER [None]
  - FEELING ABNORMAL [None]
  - VASCULAR INJURY [None]
  - JOINT DISLOCATION [None]
  - DYSPNOEA [None]
  - CARDIAC OPERATION [None]
  - HYPERHIDROSIS [None]
  - FATIGUE [None]
  - HYPOTONIA [None]
  - OEDEMA PERIPHERAL [None]
  - DYSPNOEA EXERTIONAL [None]
